FAERS Safety Report 6460413-3 (Version None)
Quarter: 2009Q4

REPORT INFORMATION
  Report Type: 
  Country: None (occurrence: None)
  Receive Date: 20091130
  Receipt Date: 20091117
  Transmission Date: 20100525
  Serious: Yes (Other)
  Sender: FDA-Public Use
  Company Number: BR-JNJFOC-20091105820

PATIENT
  Sex: Female
  Weight: 63 kg

DRUGS (3)
  1. TYLEX [Suspect]
     Indication: BURSITIS
     Route: 065
     Dates: start: 20091116
  2. ENALAPRIL MALEATE [Concomitant]
     Indication: HYPERTENSION
  3. MODURETIC 5-50 [Concomitant]
     Indication: HYPERTENSION

REACTIONS (5)
  - FORMICATION [None]
  - HEADACHE [None]
  - NAUSEA [None]
  - SOPOR [None]
  - VOMITING [None]
